FAERS Safety Report 10368110 (Version 1)
Quarter: 2014Q1

REPORT INFORMATION
  Report Type: Spontaneous
  Country: US (occurrence: None)
  Receive Date: 20140306
  Receipt Date: 20140306
  Transmission Date: 20141002
  Serious: Yes (Other)
  Sender: FDA-Public Use
  Company Number: 163-21880-13083139

PATIENT
  Age: 72 Year
  Sex: Female

DRUGS (11)
  1. REVLIMID [Suspect]
     Indication: PLASMA CELL MYELOMA
     Dosage: 16 MG, 21 IN 28 D, PO
     Route: 048
     Dates: start: 201001
  2. ASPIRIN (ACETYLSALICYLIC ACID) [Concomitant]
  3. B-COMPLEX WITH VITAMIN C (B COMPLEX WITH VIT C) [Concomitant]
  4. VITAMIN C (ASCORBIC ACID) [Concomitant]
  5. ACYCLOVIR (ACICLOVIR) [Concomitant]
  6. PRILOSEC DR (OMEPRAZOLE) [Concomitant]
  7. MULTIVITAMINS (MULTIVITAMINS) [Concomitant]
  8. DEXAMETHASONE (DEXAMETHASONE) [Concomitant]
  9. AMLODIPINE BESYLATE (AMLODIPINE BESILATE) [Concomitant]
  10. CALCITROL (CALCITROL) [Concomitant]
  11. CALCIUM MAGNESIUM-ZINC (CALCIUM MAGNESIUM ZINC) [Concomitant]

REACTIONS (5)
  - Compression fracture [None]
  - Diverticulitis [None]
  - Vision blurred [None]
  - Drug ineffective [None]
  - Arthralgia [None]
